FAERS Safety Report 6523923-6 (Version None)
Quarter: 2009Q4

REPORT INFORMATION
  Report Type: 
  Country: None (occurrence: None)
  Receive Date: 20091230
  Receipt Date: 20091230
  Transmission Date: 20100525
  Serious: No
  Sender: FDA-Public Use
  Company Number: None

PATIENT
  Age: 54 Year
  Sex: Male
  Weight: 88.4514 kg

DRUGS (1)
  1. COLD REMEDY GEL SWABS [Suspect]
     Dosage: SPORADIC - 6 YEARS 6 YEARS AGO-RECENT

REACTIONS (1)
  - HYPOSMIA [None]
